FAERS Safety Report 6461102-1 (Version None)
Quarter: 2009Q4

REPORT INFORMATION
  Report Type: 
  Country: None (occurrence: None)
  Receive Date: 20091130
  Receipt Date: 20091120
  Transmission Date: 20100525
  Serious: Yes (Hospitalization)
  Sender: FDA-Public Use
  Company Number: B0608384A

PATIENT
  Sex: Male
  Weight: 13.8 kg

DRUGS (4)
  1. LAMIVUDINE [Suspect]
     Indication: HIV INFECTION
     Dosage: 60MG TWICE PER DAY
     Route: 048
     Dates: start: 20080729, end: 20091111
  2. ZIDOVUDINE [Suspect]
     Indication: HIV INFECTION
     Dosage: 100MG TWICE PER DAY
     Route: 048
     Dates: start: 20090729, end: 20091111
  3. NEVIRAPINE [Suspect]
     Indication: HIV INFECTION
     Dosage: 140MG TWICE PER DAY
     Route: 048
     Dates: start: 20090729, end: 20091117
  4. BACTRIM [Concomitant]
     Route: 048
     Dates: end: 20091107

REACTIONS (3)
  - DIARRHOEA [None]
  - GASTROENTERITIS [None]
  - PULMONARY TUBERCULOSIS [None]
